FAERS Safety Report 8961530 (Version 3)
Quarter: 2012Q4

REPORT INFORMATION
  Report Type: Report from Study
  Country: CA (occurrence: CA)
  Receive Date: 20121213
  Receipt Date: 20121223
  Transmission Date: 20130627
  Serious: Yes (Hospitalization, Disabling, Other)
  Sender: FDA-Public Use
  Company Number: PHHY2012CA114354

PATIENT
  Age: 72 Year
  Sex: Male

DRUGS (12)
  1. CLOZARIL [Suspect]
     Dosage: UNK
     Dates: start: 20120814
  2. CLOZARIL [Suspect]
     Dosage: 6.25 mg, UNK
     Dates: start: 20120912, end: 20121009
  3. EXELON [Suspect]
     Dosage: UNK
     Route: 048
     Dates: start: 20120912
  4. SEROQUEL [Suspect]
     Dosage: UNK
  5. STALEVO [Concomitant]
     Dosage: UNK UKN, UNK
  6. DOMPERIDONE [Concomitant]
     Dosage: UNK UKN, UNK
  7. SODIUM CHLORIDE [Concomitant]
  8. VITAMIN B12 [Concomitant]
     Dosage: UNK UKN, UNK
  9. FOSAMAX [Concomitant]
     Dosage: UNK UKN, UNK
  10. CRESTOR [Concomitant]
     Dosage: UNK UKN, UNK
  11. METOPROLOL [Concomitant]
     Dosage: UNK UKN, UNK
  12. ACID ACETYLSALICYLIC [Concomitant]
     Dosage: UNK UKN, UNK

REACTIONS (3)
  - Balance disorder [Not Recovered/Not Resolved]
  - Hypotension [Not Recovered/Not Resolved]
  - Parkinson^s disease [Not Recovered/Not Resolved]
